FAERS Safety Report 25860090 (Version 1)
Quarter: 2025Q3

REPORT INFORMATION
  Report Type: Spontaneous
  Country: US (occurrence: None)
  Receive Date: 20250927
  Receipt Date: 20250927
  Transmission Date: 20251020
  Serious: Yes (Life-Threatening, Other)
  Sender: FDA-CTU
  Company Number: None

PATIENT
  Age: 28 Year
  Sex: Male
  Weight: 67.5 kg

DRUGS (4)
  1. .DELTA.9-TETRAHYDROCANNABINOL ACETATE\HERBALS [Suspect]
     Active Substance: .DELTA.9-TETRAHYDROCANNABINOL ACETATE\HERBALS
     Indication: Cardiac disorder
     Dates: start: 20250927
  2. .DELTA.9-TETRAHYDROCANNABINOL ACETATE\HERBALS [Suspect]
     Active Substance: .DELTA.9-TETRAHYDROCANNABINOL ACETATE\HERBALS
     Indication: Increased appetite
  3. HERBALS\HEXAHYDROCANNABINOL O-ACETATE [Suspect]
     Active Substance: HERBALS\HEXAHYDROCANNABINOL O-ACETATE
     Indication: Drug therapy
  4. BENADRYL [Concomitant]
     Active Substance: DIPHENHYDRAMINE HYDROCHLORIDE

REACTIONS (3)
  - Heart rate increased [None]
  - Arrhythmia [None]
  - Suspected counterfeit product [None]

NARRATIVE: CASE EVENT DATE: 20250927
